FAERS Safety Report 10246284 (Version 1)
Quarter: 2014Q2

REPORT INFORMATION
  Report Type: Spontaneous
  Country: US (occurrence: US)
  Receive Date: 20140619
  Receipt Date: 20140619
  Transmission Date: 20141212
  Serious: Yes (Hospitalization)
  Sender: FDA-Public Use
  Company Number: US-SUN PHARMACEUTICAL INDUSTRIES LTD-2014SUN01339

PATIENT
  Age: 56 Year
  Sex: Male

DRUGS (5)
  1. LITHIUM CARBONATE [Suspect]
     Indication: BIPOLAR DISORDER
     Dosage: 1200 MG, DAILY IN DIVIDED DOSES
     Route: 065
  2. IBUPROFEN [Interacting]
     Indication: ARTHRALGIA
     Route: 065
  3. LISINOPRIL [Concomitant]
     Dosage: 20 MG, OD
  4. QUETIAPINE [Concomitant]
     Dosage: 300 MG, AT BED TIME
  5. RISPERIDONE [Concomitant]
     Dosage: 1 MG, BID

REACTIONS (2)
  - Neurotoxicity [Recovered/Resolved]
  - Drug interaction [Recovered/Resolved]
